FAERS Safety Report 8537628-3 (Version None)
Quarter: 2012Q3

REPORT INFORMATION
  Report Type: 
  Country: None (occurrence: None)
  Receive Date: 20120725
  Receipt Date: 20120716
  Transmission Date: 20120928
  Serious: Yes (Other)
  Sender: FDA-Public Use
  Company Number: US-ASTRAZENECA-2011SE54454

PATIENT
  Age: 28 Year
  Sex: Male
  Weight: 96.2 kg

DRUGS (8)
  1. NEURONTIN [Concomitant]
  2. SEROQUEL [Suspect]
     Indication: SCHIZOPHRENIA, PARANOID TYPE
     Route: 048
  3. SEROQUEL [Suspect]
     Route: 048
  4. SEROQUEL [Suspect]
     Indication: SLEEP DISORDER
     Route: 048
  5. KLONOPIN [Concomitant]
  6. AMBIEN [Concomitant]
  7. SEROQUEL [Suspect]
     Route: 048
  8. ADDERALL 5 [Suspect]
     Route: 065

REACTIONS (15)
  - DRUG INEFFECTIVE [None]
  - MALAISE [None]
  - DRUG DEPENDENCE [None]
  - BIPOLAR DISORDER [None]
  - DRUG SCREEN POSITIVE [None]
  - HYPOAESTHESIA [None]
  - ATTENTION DEFICIT/HYPERACTIVITY DISORDER [None]
  - HALLUCINATION, VISUAL [None]
  - ACTIVITIES OF DAILY LIVING IMPAIRED [None]
  - DRUG WITHDRAWAL SYNDROME [None]
  - DRUG DOSE OMISSION [None]
  - INSOMNIA [None]
  - MENTAL DISORDER [None]
  - SCHIZOPHRENIA, PARANOID TYPE [None]
  - ADVERSE EVENT [None]
